FAERS Safety Report 13673987 (Version 1)
Quarter: 2017Q2

REPORT INFORMATION
  Report Type: Spontaneous
  Country: US (occurrence: US)
  Receive Date: 20170620
  Receipt Date: 20170620
  Transmission Date: 20170830
  Serious: No
  Sender: FDA-Public Use
  Company Number: None

PATIENT
  Age: 44 Year
  Sex: Female

DRUGS (1)
  1. QUETIAPINE FUMARATE. [Suspect]
     Active Substance: QUETIAPINE FUMARATE
     Route: 048
     Dates: start: 20161109, end: 20170619

REACTIONS (5)
  - Palpitations [None]
  - Hyperhidrosis [None]
  - Pallor [None]
  - Lethargy [None]
  - Dyspnoea [None]

NARRATIVE: CASE EVENT DATE: 20170619
